FAERS Safety Report 10083263 (Version 1)
Quarter: 2014Q2

REPORT INFORMATION
  Report Type: Spontaneous
  Country: US (occurrence: None)
  Receive Date: 20140415
  Receipt Date: 20140415
  Transmission Date: 20141212
  Serious: Yes (Hospitalization, Other)
  Sender: FDA-Public Use
  Company Number: VAL_03070_2014

PATIENT
  Sex: Female

DRUGS (42)
  1. ROCALTROL [Suspect]
     Indication: LUNG TRANSPLANT
     Route: 048
  2. VALCYTE [Suspect]
     Indication: LUNG TRANSPLANT
     Route: 048
  3. FILGRASTIM [Suspect]
     Indication: LUNG TRANSPLANT
     Dosage: DF
  4. CELLCEPT /01275102/ [Suspect]
     Indication: LUNG TRANSPLANT
     Dosage: DF
     Route: 048
  5. ALENDRONATE [Concomitant]
  6. CALCIUM CARBONATE [Concomitant]
  7. MAGNESIUM OXIDE [Concomitant]
  8. ONDANSETRON [Concomitant]
  9. PROMETHAZINE [Concomitant]
  10. HYDROZYZINE [Concomitant]
  11. AZITHROMYCIN [Concomitant]
  12. BACTRIM [Concomitant]
  13. PYRIDIUM [Concomitant]
  14. VENTOLIN /00139502/ [Concomitant]
  15. ZITHROMAX [Concomitant]
  16. CELEXA [Concomitant]
  17. LOVENOX [Concomitant]
  18. GLUCAGON [Concomitant]
  19. NYSTATIN [Concomitant]
  20. ZYPREXA [Concomitant]
  21. ZOFRAN /00955301/ [Concomitant]
  22. PROTONIX [Concomitant]
  23. PHENAZOPYRIDINE HYDROCHLORIDE [Concomitant]
  24. PIPERACILLIN [Concomitant]
  25. CARAFATE [Concomitant]
  26. VANCOMYCIN HCL [Suspect]
  27. COUMADIN [Concomitant]
  28. MUCINEX [Concomitant]
  29. HUMULIN [Concomitant]
  30. ATROVENT [Concomitant]
  31. LEVAQUIN [Concomitant]
  32. LOPERAMIDE [Concomitant]
  33. LEVSIN [Concomitant]
  34. PREDNISONE [Concomitant]
  35. TACROLIMUS [Concomitant]
  36. ESCITALOPRAM [Concomitant]
  37. ZOSYN [Concomitant]
  38. HYDROCORTISONE ACETATE W/PRAMOCAINE HCL [Concomitant]
  39. OXYBUTYNIN CHLORIDE [Concomitant]
  40. METOPROLOL [Concomitant]
  41. MULTIVITAMIN [Concomitant]
  42. ESOMEPRAZOLE [Concomitant]

REACTIONS (24)
  - Diarrhoea [None]
  - Pyrexia [None]
  - Feeling abnormal [None]
  - Dysuria [None]
  - Burning sensation [None]
  - Urge incontinence [None]
  - Cellulitis [None]
  - Swelling [None]
  - Contusion [None]
  - Nausea [None]
  - Anorectal discomfort [None]
  - Blood thyroid stimulating hormone decreased [None]
  - Tri-iodothyronine free decreased [None]
  - Acidosis [None]
  - Vomiting [None]
  - Haematoma [None]
  - Respiratory failure [None]
  - Anxiety [None]
  - Sepsis [None]
  - Abdominal pain [None]
  - Blood potassium increased [None]
  - Blood creatinine increased [None]
  - Haemoglobin decreased [None]
  - Platelet count decreased [None]
